FAERS Safety Report 4415919-5 (Version None)
Quarter: 2004Q3

REPORT INFORMATION
  Report Type: 
  Country: None (occurrence: None)
  Receive Date: 20040805
  Receipt Date: 20040609
  Transmission Date: 20050211
  Serious: No
  Sender: FDA-Public Use
  Company Number: US-GLAXOSMITHKLINE-A0513961A

PATIENT
  Age: 52 Year
  Sex: Female

DRUGS (5)
  1. AVANDAMET [Suspect]
     Route: 048
  2. DEPAKOTE [Concomitant]
  3. EFFEXOR [Concomitant]
  4. INSULIN [Concomitant]
  5. NIASPAN [Concomitant]

REACTIONS (2)
  - FLUSHING [None]
  - PRURITUS [None]
